FAERS Safety Report 7996751-2 (Version None)
Quarter: 2011Q4

REPORT INFORMATION
  Report Type: 
  Country: None (occurrence: None)
  Receive Date: 20111221
  Receipt Date: 20111214
  Transmission Date: 20120403
  Serious: Yes (Hospitalization)
  Sender: FDA-Public Use
  Company Number: US-JNJFOC-20111108222

PATIENT
  Sex: Male
  Weight: 93.44 kg

DRUGS (9)
  1. CYTOTEC [Concomitant]
     Dates: end: 20111008
  2. FLUTICASONE PROPIONATE [Concomitant]
  3. STELARA [Suspect]
     Indication: PSORIASIS
     Route: 058
     Dates: start: 20110929
  4. PREDNISONE TAB [Concomitant]
     Route: 048
  5. FLUOCINOLONE ACETONIDE [Concomitant]
  6. OLUX [Concomitant]
  7. CLOBEX [Concomitant]
  8. TYLENOL W/ CODEINE NO. 3 [Concomitant]
     Indication: PAIN
     Dosage: 1-2 TWICE A DAY
     Route: 048
  9. ZYRTEC [Concomitant]
     Dosage: 10-20 MG, TWICE A DAY AS NECESSARY

REACTIONS (3)
  - ALCOHOL POISONING [None]
  - PNEUMONIA [None]
  - SEPSIS [None]
